FAERS Safety Report 17079827 (Version 1)
Quarter: 2019Q4

REPORT INFORMATION
  Report Type: Spontaneous
  Country: US (occurrence: US)
  Receive Date: 20191127
  Receipt Date: 20191127
  Transmission Date: 20200122
  Serious: No
  Sender: FDA-Public Use
  Company Number: US-GLAXOSMITHKLINE-US2019207401

PATIENT
  Age: 55 Year
  Sex: Male

DRUGS (2)
  1. ALLI [Suspect]
     Active Substance: ORLISTAT
     Indication: WEIGHT LOSS DIET
     Dosage: UNK
     Dates: start: 20191015, end: 20191017
  2. ALLI [Suspect]
     Active Substance: ORLISTAT
     Dosage: UNK,(7-8 YEARS)

REACTIONS (2)
  - Steatorrhoea [Unknown]
  - Bowel movement irregularity [Unknown]
